FAERS Safety Report 25300698 (Version 1)
Quarter: 2025Q2

REPORT INFORMATION
  Report Type: Spontaneous
  Country: US (occurrence: None)
  Receive Date: 20250509
  Receipt Date: 20250509
  Transmission Date: 20250716
  Serious: Yes (Life-Threatening, Hospitalization, Other)
  Sender: FDA-CTU
  Company Number: None

PATIENT
  Age: 42 Year
  Sex: Female

DRUGS (1)
  1. CYANOCOBALAMIN\TIRZEPATIDE [Suspect]
     Active Substance: CYANOCOBALAMIN\TIRZEPATIDE
     Indication: Weight control
     Route: 058

REACTIONS (3)
  - Urticaria [None]
  - Hypersensitivity [None]
  - Hypotension [None]

NARRATIVE: CASE EVENT DATE: 20250429
